FAERS Safety Report 20514662 (Version 1)
Quarter: 2022Q1

REPORT INFORMATION
  Report Type: Spontaneous
  Country: US (occurrence: None)
  Receive Date: 20220224
  Receipt Date: 20220224
  Transmission Date: 20220423
  Serious: Yes (Hospitalization, Other)
  Sender: FDA-Public Use
  Company Number: None

PATIENT
  Age: 41 Year
  Sex: Female
  Weight: 79.2 kg

DRUGS (1)
  1. .DELTA.8-TETRAHYDROCANNABINOL\CANNABIDIOL\HERBALS [Suspect]
     Active Substance: .DELTA.8-TETRAHYDROCANNABINOL\CANNABIDIOL\HERBALS
     Indication: Depression
     Route: 055
     Dates: start: 20210301, end: 20220215

REACTIONS (4)
  - Migraine [None]
  - Suicidal ideation [None]
  - Product complaint [None]
  - Feeling abnormal [None]

NARRATIVE: CASE EVENT DATE: 20220215
